FAERS Safety Report 19513759 (Version 2)
Quarter: 2023Q4

REPORT INFORMATION
  Report Type: Spontaneous
  Country: US (occurrence: US)
  Receive Date: 20210709
  Receipt Date: 20231027
  Transmission Date: 20240110
  Serious: No
  Sender: FDA-Public Use
  Company Number: US-AVEO ONCOLOGY-2021-AVEO-US003316

PATIENT

DRUGS (1)
  1. FOTIVDA [Suspect]
     Active Substance: TIVOZANIB HYDROCHLORIDE
     Indication: Malignant melanoma
     Dosage: 1.34 MG

REACTIONS (5)
  - Blood pressure increased [Unknown]
  - Dysphonia [Unknown]
  - Bone pain [Unknown]
  - Arthralgia [Unknown]
  - Product use in unapproved indication [None]
